FAERS Safety Report 14838694 (Version 5)
Quarter: 2019Q3

REPORT INFORMATION
  Report Type: Spontaneous
  Country: US (occurrence: US)
  Receive Date: 20180502
  Receipt Date: 20190714
  Transmission Date: 20191004
  Serious: Yes (Hospitalization, Other)
  Sender: FDA-Public Use
  Company Number: US-BIOGEN-2018BI00562799

PATIENT
  Sex: Male

DRUGS (6)
  1. TYSABRI [Suspect]
     Active Substance: NATALIZUMAB
     Indication: MULTIPLE SCLEROSIS
     Route: 065
     Dates: start: 20151217, end: 20160218
  2. TECFIDERA [Suspect]
     Active Substance: DIMETHYL FUMARATE
     Route: 050
     Dates: start: 20160229, end: 20180227
  3. LYRICA [Suspect]
     Active Substance: PREGABALIN
     Route: 050
     Dates: start: 201611
  4. TECFIDERA [Suspect]
     Active Substance: DIMETHYL FUMARATE
     Indication: MULTIPLE SCLEROSIS
     Route: 050
  5. TECFIDERA [Suspect]
     Active Substance: DIMETHYL FUMARATE
     Route: 050
     Dates: start: 2014
  6. LYRICA [Suspect]
     Active Substance: PREGABALIN
     Indication: PRODUCT USED FOR UNKNOWN INDICATION
     Route: 050
     Dates: start: 201605, end: 201803

REACTIONS (19)
  - Urinary retention [Unknown]
  - Renal disorder [Unknown]
  - Urinary hesitation [Unknown]
  - Renal pain [Unknown]
  - Peroneal nerve palsy [Unknown]
  - Oedema peripheral [Unknown]
  - Hypertension [Unknown]
  - Gait disturbance [Unknown]
  - Renal atrophy [Unknown]
  - Toxicologic test abnormal [Unknown]
  - Abdominal distension [Not Recovered/Not Resolved]
  - Hepatic cyst [Unknown]
  - Diplopia [Unknown]
  - Intervertebral disc compression [Unknown]
  - Abdominal pain [Unknown]
  - Helicobacter infection [Recovered/Resolved]
  - Renal cyst [Unknown]
  - Intestinal ulcer [Not Recovered/Not Resolved]
  - Peripheral swelling [Unknown]
